FAERS Safety Report 15395882 (Version 2)
Quarter: 2019Q1

REPORT INFORMATION
  Report Type: Report from Study
  Country: KR (occurrence: KR)
  Receive Date: 20180918
  Receipt Date: 20190128
  Transmission Date: 20190417
  Serious: Yes (Hospitalization)
  Sender: FDA-Public Use
  Company Number: KR-EISAI MEDICAL RESEARCH-EC-2018-045155

PATIENT
  Age: 64 Year
  Sex: Male
  Weight: 80 kg

DRUGS (8)
  1. SYNTHYROXINE [Concomitant]
     Active Substance: LEVOTHYROXINE SODIUM
  2. GALVUS [Concomitant]
     Active Substance: VILDAGLIPTIN
  3. LENVIMA [Suspect]
     Active Substance: LENVATINIB
     Route: 048
     Dates: start: 2018
  4. LIPITOR [Concomitant]
     Active Substance: ATORVASTATIN CALCIUM
  5. LENVIMA [Suspect]
     Active Substance: LENVATINIB
     Indication: PRODUCT USED FOR UNKNOWN INDICATION
     Route: 048
     Dates: start: 20180521, end: 20180630
  6. GLUPA [Concomitant]
     Active Substance: METFORMIN HYDROCHLORIDE
  7. CANDEMORE [Concomitant]
  8. JEIL ALMAX [Concomitant]

REACTIONS (2)
  - Colitis [Recovered/Resolved]
  - Hypocalcaemia [Recovered/Resolved]

NARRATIVE: CASE EVENT DATE: 20180611
